FAERS Safety Report 7300740-0 (Version None)
Quarter: 2011Q1

REPORT INFORMATION
  Report Type: 
  Country: None (occurrence: None)
  Receive Date: 20110105
  Receipt Date: 20101006
  Transmission Date: 20110831
  Serious: Yes (Death)
  Sender: FDA-Public Use
  Company Number: 305745

PATIENT
  Age: 74 Year
  Sex: Female
  Weight: 59 kg

DRUGS (4)
  1. METOPROLOL (METOPROLOL NOS) [Concomitant]
  2. ACTIVASE [Suspect]
     Indication: ISCHAEMIC STROKE
     Dosage: 53.1 MG, SINGLE, INTRAVENOUS
     Route: 042
     Dates: start: 20100719
  3. DIGOXIN [Concomitant]
  4. DILTIAZEM [Concomitant]

REACTIONS (1)
  - HAEMORRHAGE INTRACRANIAL [None]
